FAERS Safety Report 6689767-X (Version None)
Quarter: 2010Q2

REPORT INFORMATION
  Report Type: 
  Country: None (occurrence: None)
  Receive Date: 20100421
  Receipt Date: 20100412
  Transmission Date: 20101027
  Serious: Yes (Other)
  Sender: FDA-Public Use
  Company Number: GB-JNJFOC-20100306288

PATIENT
  Age: 77 Year
  Sex: Male

DRUGS (9)
  1. ITRACONAZOLE [Suspect]
     Indication: ASPERGILLOMA
     Route: 065
  2. ITRACONAZOLE [Suspect]
     Route: 065
  3. LANSOPRAZOLE [Concomitant]
     Route: 065
  4. ASPIRIN [Concomitant]
     Route: 065
  5. CALCICHEW [Concomitant]
     Route: 065
  6. RISEDRONATE SODIUM [Concomitant]
     Route: 065
  7. CODEINE SULFATE [Concomitant]
     Route: 065
  8. SENNA [Concomitant]
     Route: 065
  9. LACTULOSE [Concomitant]
     Route: 065

REACTIONS (1)
  - TREMOR [None]
